FAERS Safety Report 8940651 (Version 1)
Quarter: 2012Q4

REPORT INFORMATION
  Report Type: Report from Study
  Country: CA (occurrence: CA)
  Receive Date: 20121203
  Receipt Date: 20121203
  Transmission Date: 20130627
  Serious: Yes (Hospitalization)
  Sender: FDA-Public Use
  Company Number: CA-ROCHE-1162614

PATIENT
  Age: 89 Year
  Sex: Female

DRUGS (1)
  1. RANIBIZUMAB [Suspect]
     Indication: AGE-RELATED MACULAR DEGENERATION
     Route: 065
     Dates: start: 20091126, end: 20120710

REACTIONS (1)
  - Neoplasm malignant [Unknown]
